FAERS Safety Report 23911409 (Version 1)
Quarter: 2024Q2

REPORT INFORMATION
  Report Type: Report from Study
  Country: CA (occurrence: CA)
  Receive Date: 20240528
  Receipt Date: 20240528
  Transmission Date: 20240717
  Serious: Yes (Death, Other)
  Sender: FDA-Public Use
  Company Number: CA-SANDOZ-SDZ2023CA076053

PATIENT
  Age: 60 Year
  Sex: Female

DRUGS (1)
  1. FULVESTRANT [Suspect]
     Active Substance: FULVESTRANT
     Indication: Product used for unknown indication
     Dosage: UNK
     Route: 065
     Dates: start: 20221207, end: 202304

REACTIONS (2)
  - Death [Fatal]
  - Therapy interrupted [Unknown]

NARRATIVE: CASE EVENT DATE: 20230401
